FAERS Safety Report 6460100-1 (Version None)
Quarter: 2009Q4

REPORT INFORMATION
  Report Type: 
  Country: None (occurrence: None)
  Receive Date: 20091129
  Receipt Date: 20091123
  Transmission Date: 20100525
  Serious: Yes (Death)
  Sender: FDA-Public Use
  Company Number: PHHY2009ZA50900

PATIENT
  Sex: Male

DRUGS (4)
  1. VAA489A VAL_AML+TAB [Suspect]
  2. BISOCARD [Concomitant]
     Indication: HYPERTENSION
     Dosage: 5 MG PER DAY
     Dates: start: 20090508
  3. SIMVASTATIN [Concomitant]
     Indication: HYPERCHOLESTEROLAEMIA
     Dosage: 40 MG PER DAY
     Dates: start: 20090508
  4. PURICOS [Concomitant]
     Indication: GOUT
     Dosage: 300 MG PER DAY
     Dates: start: 20090508

REACTIONS (1)
  - MYOCARDIAL INFARCTION [None]
